FAERS Safety Report 9019662 (Version 2)
Quarter: 2013Q1

REPORT INFORMATION
  Report Type: Spontaneous
  Country: BR (occurrence: BR)
  Receive Date: 20130118
  Receipt Date: 20130128
  Transmission Date: 20140127
  Serious: Yes (Hospitalization, Other)
  Sender: FDA-Public Use
  Company Number: BR-PFIZER INC-2013019618

PATIENT
  Age: 79 Year
  Sex: Female

DRUGS (13)
  1. LIPITOR [Suspect]
     Indication: BLOOD CHOLESTEROL
     Dosage: 1 TABLET (20 MG), 1X/DAY
     Route: 048
     Dates: start: 20060908
  2. AAS [Concomitant]
     Dosage: UNK
  3. AMARYL [Concomitant]
     Dosage: UNK
  4. CITONEURIN [Concomitant]
     Dosage: UNK
  5. DIGESAN [Concomitant]
     Dosage: UNK
  6. ENALAPRIL [Concomitant]
     Dosage: UNK
  7. LIMBITROL [Concomitant]
     Dosage: UNK
  8. MACRODANTINA [Concomitant]
     Dosage: UNK
  9. NATURETTI [Concomitant]
     Dosage: UNK
  10. OMEPRAZOL [Concomitant]
     Dosage: UNK
  11. OSCAL D [Concomitant]
     Dosage: UNK
  12. RIVOTRIL [Concomitant]
     Dosage: UNK
  13. ULTRACET [Concomitant]
     Dosage: UNK

REACTIONS (8)
  - Small intestine ulcer [Unknown]
  - Blood glucose decreased [Unknown]
  - Fall [Recovering/Resolving]
  - Head injury [Unknown]
  - Face injury [Unknown]
  - Anaemia [Unknown]
  - Blindness [Unknown]
  - Deafness [Unknown]
